FAERS Safety Report 7810206-7 (Version None)
Quarter: 2011Q4

REPORT INFORMATION
  Report Type: 
  Country: None (occurrence: None)
  Receive Date: 20111012
  Receipt Date: 20110607
  Transmission Date: 20120403
  Serious: Yes (Other)
  Sender: FDA-Public Use
  Company Number: GB-ABBOTT-11P-167-0730907-00

PATIENT
  Age: 43 Year
  Sex: Male

DRUGS (19)
  1. RITONAVIR [Suspect]
     Indication: HIV INFECTION
     Dates: start: 20070101
  2. EMTRICITABINE [Concomitant]
     Indication: HIV INFECTION
     Dates: start: 20070101
  3. ANTIVIRAL UNSPECIFIED [Concomitant]
     Indication: HIV INFECTION
     Dates: start: 20070101
  4. ANTIVIRAL UNSPECIFIED [Concomitant]
     Route: 065
     Dates: start: 20070101
  5. DILTIAZEM HCL [Concomitant]
     Indication: HYPERTENSION
  6. PERINDOPRIL ERBUMINE [Interacting]
     Indication: HYPERTENSION
     Route: 048
     Dates: start: 20080101, end: 20080101
  7. MARAVIROC [Concomitant]
     Indication: HIV INFECTION
  8. SUMATRIPTAN SUCCINATE [Concomitant]
     Indication: MIGRAINE
     Dosage: INTERMITTENT
     Dates: start: 20080101
  9. TENOFOVIR DISOPROXIL FUMARATE [Concomitant]
     Route: 065
  10. ATORVASTATIN [Concomitant]
     Indication: LIPIDS INCREASED
  11. BENDROFLUMETHIAZIDE [Concomitant]
     Indication: PRODUCT USED FOR UNKNOWN INDICATION
  12. RAMIPRIL [Concomitant]
     Indication: HYPERTENSION
     Dosage: LOW DOSE
  13. RALTEGRAVIR [Concomitant]
     Indication: HIV INFECTION
     Dates: start: 20070101
  14. PROPRANOLOL [Concomitant]
  15. PROPRANOLOL [Concomitant]
     Indication: MIGRAINE
     Dates: start: 20080101
  16. DILTIAZEM HCL [Concomitant]
  17. IRBESARTAN [Concomitant]
     Indication: PRODUCT USED FOR UNKNOWN INDICATION
  18. DARUNAVIR ETHANOLATE [Interacting]
     Indication: HIV INFECTION
     Route: 048
     Dates: start: 20070101
  19. TENOFOVIR DISOPROXIL FUMARATE [Concomitant]
     Indication: HIV INFECTION
     Route: 065
     Dates: start: 20070101

REACTIONS (4)
  - RENAL IMPAIRMENT [None]
  - DRUG LEVEL INCREASED [None]
  - DRUG INTERACTION [None]
  - BLOOD CREATININE INCREASED [None]
